FAERS Safety Report 6087307-X (Version None)
Quarter: 2009Q1

REPORT INFORMATION
  Report Type: 
  Country: None (occurrence: None)
  Receive Date: 20090223
  Receipt Date: 20090218
  Transmission Date: 20090719
  Serious: Yes (Other)
  Sender: FDA-Public Use
  Company Number: A0769117A

PATIENT
  Age: 46 Year
  Sex: Female

DRUGS (13)
  1. TYKERB [Suspect]
     Dosage: 4TAB PER DAY
     Route: 048
     Dates: start: 20081201
  2. SCOPOLAMINE [Suspect]
     Indication: NAUSEA
     Route: 062
     Dates: start: 20080101, end: 20080101
  3. HERCEPTIN [Concomitant]
  4. ZOMETA [Concomitant]
  5. PRILOSEC [Concomitant]
  6. LEXAPRO [Concomitant]
  7. ATIVAN [Concomitant]
  8. MULTI-VITAMIN [Concomitant]
  9. VITAMIN B COMPLEX CAP [Concomitant]
  10. VITAMIN D [Concomitant]
  11. PEPPERMINT [Concomitant]
  12. FISH OIL [Concomitant]
  13. GINGER [Concomitant]

REACTIONS (14)
  - CONDITION AGGRAVATED [None]
  - DIARRHOEA [None]
  - DRY SKIN [None]
  - FATIGUE [None]
  - FEELING ABNORMAL [None]
  - HYPOAESTHESIA [None]
  - NAUSEA [None]
  - PARALYSIS [None]
  - PRURITUS [None]
  - RASH [None]
  - SKIN CHAPPED [None]
  - SKIN LACERATION [None]
  - SKIN WRINKLING [None]
  - VOMITING [None]
